FAERS Safety Report 19017306 (Version 2)
Quarter: 2021Q1

REPORT INFORMATION
  Report Type: Spontaneous
  Country: DE (occurrence: DE)
  Receive Date: 20210316
  Receipt Date: 20210318
  Transmission Date: 20210420
  Serious: Yes (Death, Hospitalization, Other)
  Sender: FDA-Public Use
  Company Number: DE-GILEAD-2021-0521338

PATIENT
  Age: 82 Year
  Sex: Male

DRUGS (14)
  1. VEKLURY [Suspect]
     Active Substance: REMDESIVIR
     Dosage: 100 MG
     Route: 042
     Dates: start: 20210120, end: 20210121
  2. VEKLURY [Suspect]
     Active Substance: REMDESIVIR
     Indication: COVID-19 PNEUMONIA
     Dosage: 200 MG
     Route: 042
     Dates: start: 20210119, end: 20210119
  3. SPIRONOLACTON [Concomitant]
     Active Substance: SPIRONOLACTONE
  4. NALOXONE;TILIDINE [Concomitant]
     Active Substance: NALOXONE HYDROCHLORIDE\TILIDINE HYDROCHLORIDE
  5. ACTRAPHANE [Concomitant]
     Active Substance: INSULIN HUMAN
  6. EDOXABAN [Concomitant]
     Active Substance: EDOXABAN TOSYLATE
  7. METAMIZOLE [Concomitant]
     Active Substance: METAMIZOLE
  8. ACTRAPID [Concomitant]
     Active Substance: INSULIN HUMAN
     Dosage: AS NECESSARY PER BZ
  9. BISOPROLOL [Concomitant]
     Active Substance: BISOPROLOL
  10. ATORVASTATIN [Concomitant]
     Active Substance: ATORVASTATIN
  11. PANTOPRAZOLE [Concomitant]
     Active Substance: PANTOPRAZOLE
  12. PREDNISOLON [PREDNISONE] [Concomitant]
     Active Substance: PREDNISONE
     Dosage: 50 MG FOR 10 DAYS PO 1?0?0
  13. TORASEMID [Concomitant]
     Active Substance: TORSEMIDE
  14. PIPERACILLIN AND TAZOBACTAM [Concomitant]
     Active Substance: PIPERACILLIN SODIUM\TAZOBACTAM SODIUM

REACTIONS (2)
  - Respiratory failure [Fatal]
  - Drug ineffective [Unknown]

NARRATIVE: CASE EVENT DATE: 20210124
